FAERS Safety Report 8138819-6 (Version None)
Quarter: 2012Q1

REPORT INFORMATION
  Report Type: 
  Country: None (occurrence: None)
  Receive Date: 20120215
  Receipt Date: 20120213
  Transmission Date: 20120608
  Serious: No
  Sender: FDA-Public Use
  Company Number: US-TEVA-322454USA

PATIENT
  Sex: Female
  Weight: 72.64 kg

DRUGS (3)
  1. DIAZEPAM [Concomitant]
  2. PROAIR HFA [Suspect]
     Route: 055
     Dates: start: 20120211, end: 20120212
  3. HYDROMORPHONE HCL [Concomitant]

REACTIONS (3)
  - GLOSSODYNIA [None]
  - HEADACHE [None]
  - ERYTHEMA [None]
